FAERS Safety Report 5645301-4 (Version None)
Quarter: 2008Q1

REPORT INFORMATION
  Report Type: 
  Country: None (occurrence: None)
  Receive Date: 20080229
  Receipt Date: 20080220
  Transmission Date: 20080703
  Serious: Yes (Hospitalization)
  Sender: FDA-Public Use
  Company Number: A0683074A

PATIENT
  Sex: Male
  Weight: 143.2 kg

DRUGS (16)
  1. AVANDIA [Suspect]
     Dosage: 4MG PER DAY
     Route: 048
  2. GLIPIZIDE [Concomitant]
  3. DIALYSIS [Concomitant]
     Dates: start: 20050901
  4. NEURONTIN [Concomitant]
  5. NORVASC [Concomitant]
  6. TRANDATE [Concomitant]
  7. BICITRA [Concomitant]
  8. ASCORBIC ACID [Concomitant]
  9. CLONIDINE [Concomitant]
  10. NIFEREX FORTE [Concomitant]
  11. ZINC SULFATE [Concomitant]
  12. LASIX [Concomitant]
  13. TETRACYCLINE [Concomitant]
  14. PENICILLIN [Concomitant]
  15. ARANESP [Concomitant]
  16. INSULIN [Concomitant]

REACTIONS (13)
  - ARTERIAL STENOSIS [None]
  - ARTERIOVENOUS FISTULA OCCLUSION [None]
  - CARDIAC OPERATION [None]
  - CARDIOVASCULAR DISORDER [None]
  - GENERALISED OEDEMA [None]
  - HYPERTENSION [None]
  - HYPOVOLAEMIA [None]
  - LEG AMPUTATION [None]
  - OEDEMA [None]
  - PERIPHERAL VASCULAR DISORDER [None]
  - PNEUMATIC COMPRESSION THERAPY [None]
  - POOR VENOUS ACCESS [None]
  - VENOUS STENOSIS [None]
